FAERS Safety Report 9331166 (Version 3)
Quarter: 2013Q3

REPORT INFORMATION
  Report Type: Spontaneous
  Country: MX (occurrence: MX)
  Receive Date: 20130605
  Receipt Date: 20130703
  Transmission Date: 20140515
  Serious: No
  Sender: FDA-Public Use
  Company Number: MX-SANOFI-AVENTIS-2013SA035228

PATIENT
  Age: 52 Year
  Sex: Female
  Weight: 60 kg

DRUGS (10)
  1. STILNOX CR [Suspect]
     Indication: INSOMNIA
     Route: 048
     Dates: start: 201302, end: 20130330
  2. STILNOX CR [Suspect]
     Indication: INSOMNIA
     Route: 048
     Dates: start: 20130331, end: 201304
  3. STILNOX CR [Suspect]
     Indication: INSOMNIA
     Route: 048
     Dates: start: 201304, end: 201305
  4. ENALAPRIL [Concomitant]
     Indication: HYPERTENSION
     Dosage: STRENGTH: 10 MG
     Route: 048
  5. CONCOR [Concomitant]
     Indication: HYPERTENSION
     Route: 048
     Dates: start: 2008
  6. RIVOTRIL [Concomitant]
     Indication: INSOMNIA
     Route: 065
  7. ADEPSIQUE [Concomitant]
     Indication: DEPRESSION
     Dosage: STRENGTH: 10MG+3 MG+2 MG
     Route: 065
     Dates: end: 201304
  8. SYMBYAX [Concomitant]
     Indication: DEPRESSION
     Route: 048
     Dates: start: 201304
  9. VALERIANA OFFICINALIS EXTRACT [Concomitant]
     Indication: DEPRESSION
     Dosage: STRENGTH: 500 MG
     Route: 048
     Dates: start: 201304
  10. ANXIOLYTICS [Concomitant]
     Route: 065

REACTIONS (3)
  - Insomnia [Not Recovered/Not Resolved]
  - Anxiety [Recovered/Resolved]
  - Inappropriate schedule of drug administration [Unknown]
